FAERS Safety Report 15149824 (Version 2)
Quarter: 2018Q3

REPORT INFORMATION
  Report Type: Spontaneous
  Country: BR (occurrence: BR)
  Receive Date: 20180716
  Receipt Date: 20180720
  Transmission Date: 20181010
  Serious: Yes (Other)
  Sender: FDA-Public Use
  Company Number: BR-PFIZER INC-2018279638

PATIENT
  Age: 67 Year
  Sex: Male
  Weight: 59 kg

DRUGS (29)
  1. OMEPRAZOLE. [Concomitant]
     Active Substance: OMEPRAZOLE
  2. LACTULOSE. [Concomitant]
     Active Substance: LACTULOSE
     Dosage: 30 ML, 3X/DAY (EVERY 8 TO 8 HOURS)
     Route: 048
  3. VITAMIN B1 [Concomitant]
     Active Substance: THIAMINE HYDROCHLORIDE
  4. INSULIN HUMAN [Concomitant]
     Active Substance: INSULIN HUMAN
     Dosage: 12 IU, UNK (PRE?BREAKFAST)
     Route: 058
  5. LINEZOLID. [Suspect]
     Active Substance: LINEZOLID
     Indication: OSTEOMYELITIS CHRONIC
     Dosage: 600 MG, 2X/DAY (BAG WITH 300ML, 600MG EVERY 12 TO 12HOURS)
     Route: 042
     Dates: start: 20180410, end: 20180523
  6. SERTRALINE [Concomitant]
     Active Substance: SERTRALINE HYDROCHLORIDE
  7. RANITIDINE. [Concomitant]
     Active Substance: RANITIDINE
  8. INSULIN REGULAR [Concomitant]
     Active Substance: INSULIN NOS
     Dosage: 2 IU, 3X/DAY (EVERY 8 TO 8 HOURS)
     Route: 058
  9. TIGECYCLINE. [Concomitant]
     Active Substance: TIGECYCLINE
     Dosage: UNK
     Route: 042
  10. ACETYLSALICYLIC ACID [Concomitant]
     Active Substance: ASPIRIN
     Dosage: UNK, UNK, AFTER LUNCH
     Route: 048
  11. ATORVASTATIN CALCIUM. [Concomitant]
     Active Substance: ATORVASTATIN CALCIUM
     Dosage: UNK, AT NIGHT
     Route: 048
  12. GLYCERIN. [Concomitant]
     Active Substance: GLYCERIN
     Dosage: 500 ML, UNDER MEDICAL CRITERIA
     Route: 054
  13. FERROUS SULFATE. [Concomitant]
     Active Substance: FERROUS SULFATE
     Dosage: 40 MG, 1X/DAY
     Route: 048
  14. ATORVASTATIN [Concomitant]
     Active Substance: ATORVASTATIN
  15. TIGECYCLINE. [Concomitant]
     Active Substance: TIGECYCLINE
     Dosage: EVERY 12 TO 12HOURS
     Route: 042
  16. ONDANSETRON [Concomitant]
     Active Substance: ONDANSETRON
     Dosage: 4 MG, 3X/DAY (EVERY 8 TO 8 HOURS) IF NECESSARY
     Route: 042
  17. TRAMADOL. [Concomitant]
     Active Substance: TRAMADOL
     Dosage: 50 MG, 3X/DAY (EVERY 8 TO 8 HOURS) IF NECESSARY
     Route: 042
  18. OMEPRAZOLE. [Concomitant]
     Active Substance: OMEPRAZOLE
     Dosage: UNK, FASTING
     Route: 048
  19. HEPARIN [Concomitant]
     Active Substance: HEPARIN SODIUM
     Dosage: UNK, 2X/DAY (EVERY 12 TO 12HOURS)
     Route: 058
  20. ERYTHROPOIETIN [Concomitant]
     Active Substance: ERYTHROPOIETIN
     Dosage: AMPOULE 1ML
  21. GLUCOSE [Concomitant]
     Active Substance: DEXTROSE
     Dosage: 15 G ORAL SOLUTION 25ML
     Route: 048
  22. PARACETAMOL [Concomitant]
     Active Substance: ACETAMINOPHEN
     Dosage: 500 MG, 4X/DAY (EVERY 6 TO 6 HOURS) IF NECESSARY
     Route: 048
  23. ENALAPRIL [Concomitant]
     Active Substance: ENALAPRIL
  24. KETOCONAZOLE. [Concomitant]
     Active Substance: KETOCONAZOLE
  25. GLICLAZIDE [Concomitant]
     Active Substance: GLICLAZIDE
  26. VITAMIN B6 [Concomitant]
     Active Substance: PYRIDOXINE HYDROCHLORIDE
     Dosage: UNK UNK, 1X/DAY
     Route: 048
  27. CETOCONAZOL [Concomitant]
     Active Substance: KETOCONAZOLE
     Dosage: 1 DF, 1X/DAY
  28. METFORMIN [Concomitant]
     Active Substance: METFORMIN HYDROCHLORIDE
  29. GABAPENTIN. [Concomitant]
     Active Substance: GABAPENTIN
     Dosage: UNK UNK, 2X/DAY (EVERY 12 TO 12HOURS)
     Route: 048

REACTIONS (1)
  - Thrombocytopenia [Recovered/Resolved]

NARRATIVE: CASE EVENT DATE: 20180430
